FAERS Safety Report 19212373 (Version 1)
Quarter: 2021Q2

REPORT INFORMATION
  Report Type: Spontaneous
  Country: US (occurrence: US)
  Receive Date: 20210504
  Receipt Date: 20210504
  Transmission Date: 20210717
  Serious: No
  Sender: FDA-Public Use
  Company Number: US-SA-2021SA145309

PATIENT
  Age: 70 Year
  Sex: Female

DRUGS (11)
  1. DUPIXENT [Suspect]
     Active Substance: DUPILUMAB
     Indication: ASTHMA
     Dosage: 300 MG, QOW
     Route: 058
     Dates: start: 20200213
  2. BROVANA [Concomitant]
     Active Substance: ARFORMOTEROL TARTRATE
  3. LEXAPRO [Concomitant]
     Active Substance: ESCITALOPRAM OXALATE
  4. COZAAR [Concomitant]
     Active Substance: LOSARTAN POTASSIUM
  5. LIVALO [Concomitant]
     Active Substance: PITAVASTATIN CALCIUM
  6. PEPCID [Concomitant]
     Active Substance: FAMOTIDINE
  7. DILTIAZEM. [Concomitant]
     Active Substance: DILTIAZEM
  8. ESTRING [Concomitant]
     Active Substance: ESTRADIOL
  9. BUDESONIDE. [Concomitant]
     Active Substance: BUDESONIDE
  10. CLARINEX [Concomitant]
     Active Substance: DESLORATADINE
  11. ZETIA [Concomitant]
     Active Substance: EZETIMIBE

REACTIONS (2)
  - Inguinal hernia [Unknown]
  - Dry eye [Unknown]
